FAERS Safety Report 5875418-0 (Version None)
Quarter: 2008Q3

REPORT INFORMATION
  Report Type: 
  Country: None (occurrence: None)
  Receive Date: 20080904
  Receipt Date: 20080821
  Transmission Date: 20090109
  Serious: Yes (Death)
  Sender: FDA-Public Use
  Company Number: 2008AL005344

PATIENT
  Age: 90 Year
  Sex: Female
  Weight: 70.3075 kg

DRUGS (7)
  1. DIGOXIN [Suspect]
     Indication: HEART RATE INCREASED
     Dosage: 0.125MG DAILY PO
     Route: 048
     Dates: start: 20080214, end: 20080528
  2. METFORMIN [Concomitant]
  3. NORVASC [Concomitant]
  4. ATACAND [Concomitant]
  5. LEVOXYL [Concomitant]
  6. FUROSEMIDE [Concomitant]
  7. BIAXIN [Concomitant]

REACTIONS (4)
  - ANOREXIA [None]
  - GAIT DISTURBANCE [None]
  - NAUSEA [None]
  - OEDEMA PERIPHERAL [None]
